FAERS Safety Report 23833998 (Version 1)
Quarter: 2024Q2

REPORT INFORMATION
  Report Type: Spontaneous
  Country: CA (occurrence: CA)
  Receive Date: 20240509
  Receipt Date: 20240509
  Transmission Date: 20240715
  Serious: Yes (Hospitalization)
  Sender: FDA-Public Use
  Company Number: CA-PFIZER INC-202300435557

PATIENT

DRUGS (6)
  1. INFLECTRA [Suspect]
     Active Substance: INFLIXIMAB-DYYB
     Indication: Ankylosing spondylitis
     Dosage: 570 MG, 0,2,6 WK AND THEN Q4WK FOR 3M, Q5WK FOR 3M AND THEN Q6WK
     Route: 042
     Dates: start: 20240102
  2. INFLECTRA [Suspect]
     Active Substance: INFLIXIMAB-DYYB
     Dosage: 570 MG, 0,2,6 WK AND THEN Q4WK FOR 3M, Q5WK FOR 3M AND THEN Q6WK
     Route: 042
     Dates: start: 20240321
  3. INFLECTRA [Suspect]
     Active Substance: INFLIXIMAB-DYYB
     Dosage: 570 MG, 0,2,6 WK AND THEN Q4WK FOR 3M, Q5WK FOR 3M AND THEN Q6WK
     Route: 042
     Dates: start: 20240418
  4. CELEBREX [Concomitant]
     Active Substance: CELECOXIB
     Dosage: 200 MG, 2X/DAY
     Dates: start: 201909
  5. GABAPENTIN [Concomitant]
     Active Substance: GABAPENTIN
     Dosage: 400 MG
  6. GABAPENTIN [Concomitant]
     Active Substance: GABAPENTIN
     Dosage: 500 MG, 3X/DAY
     Dates: start: 2021

REACTIONS (6)
  - Injury [Unknown]
  - Fracture [Unknown]
  - Malaise [Unknown]
  - Off label use [Unknown]
  - Off label use [Unknown]
  - Intentional product use issue [Unknown]
